FAERS Safety Report 6063162-9 (Version None)
Quarter: 2009Q1

REPORT INFORMATION
  Report Type: 
  Country: None (occurrence: None)
  Receive Date: 20090203
  Receipt Date: 20090126
  Transmission Date: 20090719
  Serious: Yes (Other)
  Sender: FDA-Public Use
  Company Number: US-PFIZER INC-2009160472

PATIENT
  Sex: Female
  Weight: 60.771 kg

DRUGS (17)
  1. XALATAN [Suspect]
  2. NEXIUM [Concomitant]
  3. BEELITH [Concomitant]
  4. FUROSEMIDE [Concomitant]
  5. LIPITOR [Concomitant]
  6. SYNTHROID [Concomitant]
  7. ULTRACET [Concomitant]
  8. NEURONTIN [Concomitant]
  9. COREG [Concomitant]
  10. FENOFIBRATE [Concomitant]
  11. SPIRIVA [Concomitant]
  12. NITROSTAT [Concomitant]
  13. ALPRAZOLAM [Concomitant]
  14. ACETYLSALICYLIC ACID [Concomitant]
  15. CALCIUM [Concomitant]
  16. CENTRUM [Concomitant]
  17. MORPHINE [Concomitant]

REACTIONS (2)
  - BODY HEIGHT DECREASED [None]
  - CATARACT [None]
